FAERS Safety Report 8707402 (Version 2)
Quarter: 2013Q1

REPORT INFORMATION
  Report Type: Spontaneous
  Country: US (occurrence: US)
  Receive Date: 20120803
  Receipt Date: 20130218
  Transmission Date: 20140127
  Serious: Yes (Other)
  Sender: FDA-Public Use
  Company Number: US-ASTRAZENECA-2012SE51174

PATIENT
  Age: 50 Year
  Sex: Female

DRUGS (3)
  1. NEXIUM [Suspect]
     Dosage: EVERY MORNING
     Route: 048
  2. NEXIUM [Suspect]
     Dosage: EVERY EVENING
     Route: 048
  3. NEXIUM [Suspect]
     Route: 048

REACTIONS (7)
  - Foot fracture [Unknown]
  - Hypoaesthesia [Unknown]
  - Hiatus hernia [Unknown]
  - Aspiration [Unknown]
  - Feeling abnormal [Unknown]
  - Vomiting [Unknown]
  - Drug dose omission [Unknown]
